FAERS Safety Report 6980850-8 (Version None)
Quarter: 2010Q3

REPORT INFORMATION
  Report Type: 
  Country: None (occurrence: None)
  Receive Date: 20100826
  Receipt Date: 20100804
  Transmission Date: 20110219
  Serious: No
  Sender: FDA-Public Use
  Company Number: 2010-00577

PATIENT
  Age: 48 Year
  Sex: Female
  Weight: 106.5953 kg

DRUGS (10)
  1. ZICAM COLD REMEDY RAPIDMELTS [Suspect]
     Dosage: EVERY 4 HRS, 3 DAYS
     Dates: start: 20100604, end: 20100606
  2. ZICAM NASAL PRODUCTS [Suspect]
     Dosage: ONCE IN MORNING, 3 DAYS
     Dates: start: 20100604, end: 20100606
  3. AMARYL [Concomitant]
  4. LANTUS [Concomitant]
  5. ESTRATEST [Concomitant]
  6. DIOVAN [Concomitant]
  7. PRAVASTATIN [Concomitant]
  8. ZOLOFT [Concomitant]
  9. ZYRTEC [Concomitant]
  10. ASPIRIN [Concomitant]

REACTIONS (2)
  - AGEUSIA [None]
  - ANOSMIA [None]
